FAERS Safety Report 5076295-0 (Version None)
Quarter: 2006Q3

REPORT INFORMATION
  Report Type: 
  Country: None (occurrence: None)
  Receive Date: 20060807
  Receipt Date: 20060724
  Transmission Date: 20061208
  Serious: Yes (Hospitalization, Other)
  Sender: FDA-Public Use
  Company Number: 2006-01153

PATIENT
  Age: 59 Year
  Sex: Male
  Weight: 65.5 kg

DRUGS (17)
  1. VELCADE [Suspect]
     Indication: MULTIPLE MYELOMA
     Dosage: 2.40 MG, INTRAVENOUS
     Route: 042
     Dates: start: 20060425, end: 20060505
  2. CYCLOPHOSPHAMIDE [Suspect]
     Indication: MULTIPLE MYELOMA
     Dosage: 2800.00, INTRAVENOUS
     Route: 042
     Dates: start: 20060425, end: 20060505
  3. ASPIRIN [Concomitant]
  4. ASTORVASTATIN (ATORVASTATIN) [Concomitant]
  5. RAMIPRIL [Concomitant]
  6. POTASSIUM (POTASSIUM) [Concomitant]
  7. RANITIDIN (RANITIDINE HYDROCHLORIDE) [Concomitant]
  8. VALERIAN ROOT (VALERIANA OFFICINALIS ROOT) [Concomitant]
  9. BENZBROMARONE (BENZBROMARONE) [Concomitant]
  10. ESIDRIX [Concomitant]
  11. ENOXAPARIN SODIUM [Concomitant]
  12. PANTOPRAZOLE SODIUM [Concomitant]
  13. TEMAZEPAM [Concomitant]
  14. FENTANYL (FENTANYL CITRATE) [Concomitant]
  15. NIFEDIPINE [Concomitant]
  16. FUROSEMIDE [Concomitant]
  17. LACTULOSE [Concomitant]

REACTIONS (3)
  - LEUKOPENIA [None]
  - THROMBOCYTOPENIA [None]
  - URETHRAL HAEMORRHAGE [None]
